FAERS Safety Report 10620166 (Version 1)
Quarter: 2014Q4

REPORT INFORMATION
  Report Type: Spontaneous
  Country: JP (occurrence: None)
  Receive Date: 20141128
  Receipt Date: 20141128
  Transmission Date: 20150529
  Serious: Yes (Life-Threatening)
  Sender: FDA-Public Use
  Company Number: 9922014S

PATIENT
  Age: 59 Year
  Sex: Female

DRUGS (2)
  1. CRAVIT (LEVOFLOXACIN) EYE DROPS, 0.5% [Suspect]
     Active Substance: LEVOFLOXACIN
     Dosage: UNK UNK, SINGLE OU, OPHTHALMIC
     Route: 047
     Dates: start: 20140812, end: 20140812
  2. KARY UNI (PIRENOXINE) [Concomitant]

REACTIONS (1)
  - Anaphylactoid reaction [None]

NARRATIVE: CASE EVENT DATE: 20140812
